FAERS Safety Report 15301112 (Version 1)
Quarter: 2018Q3

REPORT INFORMATION
  Report Type: Spontaneous
  Country: NO (occurrence: NO)
  Receive Date: 20180821
  Receipt Date: 20180821
  Transmission Date: 20181010
  Serious: Yes (Death, Hospitalization)
  Sender: FDA-Public Use
  Company Number: NO-PFIZER INC-2018333332

PATIENT
  Age: 71 Year
  Sex: Female

DRUGS (5)
  1. METHOTREXATE SODIUM. [Suspect]
     Active Substance: METHOTREXATE SODIUM
     Indication: POLYMYALGIA RHEUMATICA
     Dosage: 10 MG, WEEKLY
     Dates: start: 20151228
  2. METHOTREXATE SODIUM. [Suspect]
     Active Substance: METHOTREXATE SODIUM
     Dosage: 20 MG, WEEKLY
     Dates: start: 20160219, end: 2016
  3. METHOTREXATE SODIUM. [Suspect]
     Active Substance: METHOTREXATE SODIUM
     Indication: ARTHRITIS
     Dosage: 15 MG, WEEKLY
  4. PREDNISOLON [Concomitant]
     Active Substance: PREDNISOLONE
  5. INSULIN [Concomitant]
     Active Substance: INSULIN NOS
     Indication: DIABETES MELLITUS
     Dosage: UNK UNK, AS NEEDED

REACTIONS (3)
  - Dyspnoea [Fatal]
  - General physical health deterioration [Fatal]
  - Pneumonia [Fatal]

NARRATIVE: CASE EVENT DATE: 20160424
